FAERS Safety Report 9895347 (Version 1)
Quarter: 2014Q1

REPORT INFORMATION
  Report Type: Spontaneous
  Country: US (occurrence: US)
  Receive Date: 20140213
  Receipt Date: 20140213
  Transmission Date: 20141002
  Serious: No
  Sender: FDA-Public Use
  Company Number: US-BRISTOL-MYERS SQUIBB COMPANY-18960237

PATIENT
  Age: 78 Year
  Sex: Female
  Weight: 56.23 kg

DRUGS (1)
  1. ORENCIA [Suspect]
     Indication: RHEUMATOID ARTHRITIS
     Dosage: LAST 2 TREATMENTS  APR2013 AND MAY2013?DATE OF LAST INFUSION:  23MAY2013
     Route: 042
     Dates: start: 201301

REACTIONS (1)
  - Diarrhoea [Recovered/Resolved]
